FAERS Safety Report 17697723 (Version 10)
Quarter: 2025Q1

REPORT INFORMATION
  Report Type: Report from Study
  Country: US (occurrence: US)
  Receive Date: 20200423
  Receipt Date: 20250307
  Transmission Date: 20250408
  Serious: Yes (Hospitalization, Other)
  Sender: TAKEDA
  Company Number: US-SHIRE-US202014171

PATIENT
  Sex: Female
  Weight: 52 kg

DRUGS (39)
  1. HUMAN IMMUNOGLOBULIN G [Suspect]
     Active Substance: HUMAN IMMUNOGLOBULIN G
     Indication: Immunodeficiency common variable
     Dosage: 15 GRAM, 1/WEEK
     Dates: start: 20111107
  2. HUMAN IMMUNOGLOBULIN G [Suspect]
     Active Substance: HUMAN IMMUNOGLOBULIN G
     Indication: Selective IgG subclass deficiency
     Dosage: UNK, MONTHLY
  3. HUMAN IMMUNOGLOBULIN G [Suspect]
     Active Substance: HUMAN IMMUNOGLOBULIN G
     Indication: Primary immunodeficiency syndrome
  4. ACETAMINOPHEN [Concomitant]
     Active Substance: ACETAMINOPHEN
  5. DIPHENHYDRAMINE [Concomitant]
     Active Substance: DIPHENHYDRAMINE
  6. LIDOCAINE\PRILOCAINE [Concomitant]
     Active Substance: LIDOCAINE\PRILOCAINE
  7. EPINEPHRINE [Concomitant]
     Active Substance: EPINEPHRINE
  8. LEVAQUIN [Concomitant]
     Active Substance: LEVOFLOXACIN
  9. ALBUTEROL [Concomitant]
     Active Substance: ALBUTEROL
  10. ASPIRIN [Concomitant]
     Active Substance: ASPIRIN
  11. BYSTOLIC [Concomitant]
     Active Substance: NEBIVOLOL HYDROCHLORIDE
  12. CLOTRIMAZOLE [Concomitant]
     Active Substance: CLOTRIMAZOLE
  13. SYNTHROID [Concomitant]
     Active Substance: LEVOTHYROXINE SODIUM
  14. INJECTAFER [Concomitant]
     Active Substance: FERRIC CARBOXYMALTOSE
  15. EDARBI [Concomitant]
     Active Substance: AZILSARTAN KAMEDOXOMIL
  16. CYCLOBENZAPRINE [Concomitant]
     Active Substance: CYCLOBENZAPRINE
  17. SINGULAIR [Concomitant]
     Active Substance: MONTELUKAST SODIUM
  18. PATANOL [Concomitant]
     Active Substance: OLOPATADINE HYDROCHLORIDE
  19. VICODIN [Concomitant]
     Active Substance: ACETAMINOPHEN\HYDROCODONE BITARTRATE
  20. RECLAST [Concomitant]
     Active Substance: ZOLEDRONIC ACID
  21. XYZAL [Concomitant]
     Active Substance: LEVOCETIRIZINE DIHYDROCHLORIDE
  22. NAPROXEN [Concomitant]
     Active Substance: NAPROXEN
  23. FLONASE [Concomitant]
     Active Substance: FLUTICASONE PROPIONATE
  24. PRILOSEC [Concomitant]
     Active Substance: OMEPRAZOLE MAGNESIUM
  25. CALCIUM [Concomitant]
     Active Substance: CALCIUM
  26. VITAMIN B12 [Concomitant]
     Active Substance: CYANOCOBALAMIN
  27. TRIAMCINOLONE [Concomitant]
     Active Substance: TRIAMCINOLONE
  28. FOLIC ACID [Concomitant]
     Active Substance: FOLIC ACID
  29. VITAMIN D3 [Concomitant]
     Active Substance: CHOLECALCIFEROL
  30. XOPENEX HFA [Concomitant]
     Active Substance: LEVALBUTEROL TARTRATE
  31. LEVALBUTEROL [Concomitant]
     Active Substance: LEVALBUTEROL
  32. ADVAIR HFA [Concomitant]
     Active Substance: FLUTICASONE PROPIONATE\SALMETEROL XINAFOATE
  33. HYDROCODONE BITARTRATE AND ACETAMINOPHEN [Concomitant]
     Active Substance: ACETAMINOPHEN\HYDROCODONE BITARTRATE
  34. CYANOCOBALAMIN [Concomitant]
     Active Substance: CYANOCOBALAMIN
  35. FLUTICASONE PROPIONATE [Concomitant]
     Active Substance: FLUTICASONE PROPIONATE
  36. GABAPENTIN [Concomitant]
     Active Substance: GABAPENTIN
  37. VITAMIN D2 [Concomitant]
     Active Substance: ERGOCALCIFEROL
  38. MACROBID [Concomitant]
     Active Substance: NITROFURANTOIN\NITROFURANTOIN MONOHYDRATE
  39. SPIRIVA RESPIMAT [Concomitant]
     Active Substance: TIOTROPIUM BROMIDE

REACTIONS (11)
  - Fall [Unknown]
  - Pelvic fracture [Unknown]
  - Lower limb fracture [Unknown]
  - Craniofacial fracture [Unknown]
  - Limb injury [Not Recovered/Not Resolved]
  - Impaired healing [Unknown]
  - Weight increased [Unknown]
  - Localised infection [Unknown]
  - Peripheral venous disease [Unknown]
  - Urinary tract infection [Unknown]
  - Somnolence [Unknown]
